FAERS Safety Report 15215538 (Version 2)
Quarter: 2018Q3

REPORT INFORMATION
  Report Type: Spontaneous
  Country: BR (occurrence: BR)
  Receive Date: 20180730
  Receipt Date: 20180802
  Transmission Date: 20181010
  Serious: Yes (Other)
  Sender: FDA-Public Use
  Company Number: BR-PFIZER INC-2018301475

PATIENT
  Age: 66 Year
  Sex: Male

DRUGS (4)
  1. TIMOLOL. [Concomitant]
     Active Substance: TIMOLOL
     Dosage: UNK
  2. XALATAN [Suspect]
     Active Substance: LATANOPROST
     Dosage: 1 DROP IN LEFT EYE PER DAY
     Dates: start: 20180725
  3. BRIMONIDINE TARTRATE. [Concomitant]
     Active Substance: BRIMONIDINE TARTRATE
     Dosage: UNK
  4. XALATAN [Suspect]
     Active Substance: LATANOPROST
     Indication: GLAUCOMA
     Dosage: 1 DROP IN LEFT EYE PER DAY
     Dates: start: 2003, end: 2008

REACTIONS (1)
  - Drug ineffective [Recovered/Resolved]
